FAERS Safety Report 7882245-1 (Version None)
Quarter: 2011Q4

REPORT INFORMATION
  Report Type: 
  Country: None (occurrence: None)
  Receive Date: 20111101
  Receipt Date: 20110613
  Transmission Date: 20120403
  Serious: No
  Sender: FDA-Public Use
  Company Number: US-AMGEN-USASP2011001978

PATIENT
  Age: 68 Year
  Sex: Female
  Weight: 68.027 kg

DRUGS (20)
  1. ALENDRONATE SODIUM [Concomitant]
     Dosage: 70 MG, UNK
     Route: 048
  2. DORZOLAMIDE HYDROCHLORIDE AND TIMOLOL MALEATE [Concomitant]
     Dosage: UNK UNK, BID
  3. ARAVA [Concomitant]
     Dates: start: 20080101
  4. LUMIGAN [Concomitant]
     Dosage: UNK UNK, QD
  5. METRONIDAZOLE [Concomitant]
     Dosage: 1 %, QD
     Route: 061
  6. PRAVASTATIN SODIUM [Concomitant]
     Dosage: UNK UNK, QD
     Route: 048
  7. CYMBALTA [Concomitant]
     Dosage: 60 MG, QD
     Route: 048
  8. CLOBEX                             /00337102/ [Concomitant]
     Dosage: UNK UNK, QD
  9. MULTI-VITAMINS [Concomitant]
     Route: 048
  10. CALCIUM [Concomitant]
     Route: 048
  11. BUDESONIDE [Concomitant]
  12. ENBREL [Suspect]
     Indication: ANKYLOSING SPONDYLITIS
     Dosage: 50 MG, QWK
     Dates: start: 20100331, end: 20101001
  13. ASPIRIN [Concomitant]
     Dosage: 81 MG, QD
     Route: 048
  14. BROVANA [Concomitant]
     Dosage: UNK UNK, BID
  15. IBUPROFEN [Concomitant]
     Dosage: 800 MG, TID
  16. LOVAZA [Concomitant]
     Dosage: UNK UNK, BID
     Route: 048
  17. PREDNISONE [Concomitant]
  18. SPIRIVA [Concomitant]
     Dosage: UNK UNK, QD
  19. ADVAIR DISKUS 100/50 [Concomitant]
     Dosage: UNK UNK, BID
     Route: 048
  20. VITAMIN B COMPLEX                  /00003501/ [Concomitant]

REACTIONS (11)
  - POST PROCEDURAL INFECTION [None]
  - PLATELET COUNT DECREASED [None]
  - ARTHRALGIA [None]
  - BLISTER [None]
  - RASH [None]
  - DIVERTICULUM [None]
  - DYSPNOEA [None]
  - HERPES ZOSTER [None]
  - HIATUS HERNIA [None]
  - HEPATIC ENZYME INCREASED [None]
  - DUODENITIS [None]
